FAERS Safety Report 24540945 (Version 4)
Quarter: 2024Q4

REPORT INFORMATION
  Report Type: Spontaneous
  Country: DE (occurrence: DE)
  Receive Date: 20241023
  Receipt Date: 20241121
  Transmission Date: 20250115
  Serious: Yes (Hospitalization)
  Sender: NOVARTIS
  Company Number: None

PATIENT
  Age: 21 Day
  Sex: Female
  Weight: 4.4 kg

DRUGS (2)
  1. ZOLGENSMA [Suspect]
     Active Substance: ONASEMNOGENE ABEPARVOVEC-XIOI
     Indication: Spinal muscular atrophy
     Dosage: 24.8 ML, ONCE/SINGLE (DAILY DOSE: 24.8 ML EVERY 00:00:01)
     Route: 042
     Dates: start: 20240711, end: 20240711
  2. PREDNISOLONE [Concomitant]
     Active Substance: PREDNISOLONE
     Indication: Product used for unknown indication
     Dosage: 5 MG, QD (1-0-0), (DAILY DOSE: 5 MG EVERY 1 DAY), IMMUNE MODULATION
     Route: 042
     Dates: start: 20240711, end: 20240722

REACTIONS (8)
  - Sepsis neonatal [Recovered/Resolved]
  - Pyrexia [Recovered/Resolved]
  - C-reactive protein increased [Recovered/Resolved]
  - Interleukin level increased [Recovered/Resolved]
  - Troponin increased [Recovering/Resolving]
  - Abdominal pain [Unknown]
  - Liver function test increased [Unknown]
  - Fluid intake reduced [Unknown]

NARRATIVE: CASE EVENT DATE: 20240701
